FAERS Safety Report 7063872-0 (Version None)
Quarter: 2010Q4

REPORT INFORMATION
  Report Type: 
  Country: None (occurrence: None)
  Receive Date: 20101026
  Receipt Date: 20100920
  Transmission Date: 20110411
  Serious: No
  Sender: FDA-Public Use
  Company Number: US-ABBOTT-10P-163-0671804-00

PATIENT
  Sex: Female

DRUGS (3)
  1. LUPRON [Suspect]
     Indication: IN VITRO FERTILISATION
     Dates: start: 20100903
  2. FOLLISTIM [Concomitant]
     Indication: PRODUCT USED FOR UNKNOWN INDICATION
     Dates: start: 20100915
  3. MENOPUR [Concomitant]
     Indication: PRODUCT USED FOR UNKNOWN INDICATION
     Dates: start: 20100915

REACTIONS (3)
  - FEELING ABNORMAL [None]
  - HEADACHE [None]
  - HOT FLUSH [None]
